FAERS Safety Report 17829654 (Version 1)
Quarter: 2020Q2

REPORT INFORMATION
  Report Type: Spontaneous
  Country: US (occurrence: US)
  Receive Date: 20200527
  Receipt Date: 20200527
  Transmission Date: 20200714
  Serious: Yes (Hospitalization)
  Sender: FDA-Public Use
  Company Number: None

PATIENT
  Age: 64 Year
  Sex: Female
  Weight: 63 kg

DRUGS (5)
  1. AJOVY [Suspect]
     Active Substance: FREMANEZUMAB-VFRM
     Indication: MIGRAINE
     Dosage: ?          QUANTITY:1 INJECTION(S);?
     Route: 030
  2. ALPRAZOLAM. [Concomitant]
     Active Substance: ALPRAZOLAM
  3. VITAMIN D [Concomitant]
     Active Substance: VITAMIN D NOS
  4. VENLAFAXINE [Concomitant]
     Active Substance: VENLAFAXINE HYDROCHLORIDE
  5. CALCIUM [Concomitant]
     Active Substance: CALCIUM

REACTIONS (10)
  - Headache [None]
  - Neck pain [None]
  - Tachycardia [None]
  - Dyspnoea [None]
  - Panic attack [None]
  - Abdominal pain upper [None]
  - Arthralgia [None]
  - Chest discomfort [None]
  - Blood pressure increased [None]
  - Electrocardiogram abnormal [None]

NARRATIVE: CASE EVENT DATE: 20200519
